FAERS Safety Report 9265807 (Version 3)
Quarter: 2013Q4

REPORT INFORMATION
  Report Type: Report from Study
  Country: US (occurrence: US)
  Receive Date: 20130501
  Receipt Date: 20131016
  Transmission Date: 20140711
  Serious: Yes (Death, Hospitalization, Other)
  Sender: FDA-Public Use
  Company Number: US-ACTELION-A-US2012-70495

PATIENT
  Age: 53 Year
  Sex: Male

DRUGS (7)
  1. VELETRI [Suspect]
     Indication: PULMONARY ARTERIAL HYPERTENSION
     Dosage: 40 NG/KG, PER MIN
     Route: 042
     Dates: start: 20110726, end: 20130926
  2. VELETRI [Suspect]
     Dosage: 20 NG/KG, PER MIN
     Route: 042
     Dates: start: 20110729
  3. TRACLEER [Suspect]
     Indication: PULMONARY ARTERIAL HYPERTENSION
     Dosage: UNK
     Route: 048
     Dates: start: 20120330, end: 20120920
  4. TRACLEER [Suspect]
     Dosage: 125 MG, BID
     Route: 048
     Dates: start: 20120921, end: 20121204
  5. ASPIRIN [Concomitant]
  6. FUROSEMIDE [Concomitant]
  7. LETAIRIS [Concomitant]
     Dosage: UNK

REACTIONS (8)
  - Death [Fatal]
  - Gastrointestinal haemorrhage [Recovered/Resolved]
  - Haemoglobin decreased [Recovered/Resolved]
  - Anaemia [Recovered/Resolved]
  - Transfusion [Recovering/Resolving]
  - Ascites [Recovered/Resolved]
  - Paracentesis [Not Recovered/Not Resolved]
  - Asthenia [Unknown]
